FAERS Safety Report 4917098-4 (Version None)
Quarter: 2006Q1

REPORT INFORMATION
  Report Type: 
  Country: None (occurrence: None)
  Receive Date: 20060221
  Receipt Date: 20060210
  Transmission Date: 20060701
  Serious: Yes (Other)
  Sender: FDA-Public Use
  Company Number: PHRM2006FR00749

PATIENT
  Age: 40 Year
  Sex: Female

DRUGS (1)
  1. ZOMETA [Suspect]
     Indication: METASTASES TO BONE
     Dosage: 4 MG, QMO
     Route: 042

REACTIONS (4)
  - DENTAL CARE [None]
  - IMPAIRED HEALING [None]
  - OSTEONECROSIS [None]
  - TOOTHACHE [None]
